FAERS Safety Report 6989543-4 (Version None)
Quarter: 2010Q3

REPORT INFORMATION
  Report Type: 
  Country: None (occurrence: None)
  Receive Date: 20100916
  Receipt Date: 20100215
  Transmission Date: 20110219
  Serious: Yes (Other)
  Sender: FDA-Public Use
  Company Number: CA-PFIZER INC-2007093790

PATIENT
  Age: 45 Year
  Sex: Female

DRUGS (12)
  1. LYRICA [Suspect]
     Indication: BACK PAIN
     Dosage: 50 MG, 2X/DAY
     Route: 048
     Dates: start: 20070109, end: 20070101
  2. LYRICA [Suspect]
     Indication: FIBROMYALGIA
  3. REACTINE [Concomitant]
     Indication: HYPERSENSITIVITY
  4. TYLENOL [Concomitant]
  5. IBUPROFEN [Concomitant]
     Dosage: UNK
  6. ATIVAN [Concomitant]
  7. ROBAXACET [Concomitant]
  8. ASPIRIN [Concomitant]
  9. PREDNISONE [Concomitant]
     Dosage: UNK
  10. CLONAZEPAM [Concomitant]
  11. CLARITIN [Concomitant]
     Indication: HYPERSENSITIVITY
  12. HYDROXYCHLOROQUINE [Concomitant]

REACTIONS (26)
  - ARTHROPATHY [None]
  - BLADDER DISORDER [None]
  - BLOOD TEST ABNORMAL [None]
  - COORDINATION ABNORMAL [None]
  - DIPLOPIA [None]
  - DRY MOUTH [None]
  - EOSINOPHIL COUNT INCREASED [None]
  - EYELID PTOSIS [None]
  - FACE OEDEMA [None]
  - FATIGUE [None]
  - HEART RATE IRREGULAR [None]
  - HYPERACUSIS [None]
  - MIOSIS [None]
  - MUSCLE SPASMS [None]
  - MYALGIA [None]
  - NIGHT BLINDNESS [None]
  - PAIN [None]
  - PHOTOPHOBIA [None]
  - PLATELET COUNT INCREASED [None]
  - RASH [None]
  - RED BLOOD CELL COUNT INCREASED [None]
  - SALIVARY DUCT OBSTRUCTION [None]
  - SALIVARY GLAND ENLARGEMENT [None]
  - SPEECH DISORDER [None]
  - TINNITUS [None]
  - WHITE BLOOD CELL COUNT INCREASED [None]
